FAERS Safety Report 7990182-7 (Version None)
Quarter: 2011Q4

REPORT INFORMATION
  Report Type: 
  Country: None (occurrence: None)
  Receive Date: 20111215
  Receipt Date: 20111123
  Transmission Date: 20120403
  Serious: Yes (Hospitalization)
  Sender: FDA-Public Use
  Company Number: JPI-P-018472

PATIENT
  Age: 67 Year
  Sex: Female
  Weight: 72.5755 kg

DRUGS (7)
  1. ERYTHROMYCIN [Concomitant]
  2. METRONIDAZOLE [Concomitant]
  3. DEXLANSOPRAZOLE [Concomitant]
  4. XYREM [Suspect]
     Indication: CATAPLEXY
     Dosage: (2 IN 1 D),ORAL ; 7 GM (3.5 GM,2 IN 1 D),ORAL
     Route: 048
     Dates: start: 20100301
  5. ARMODAFINIL [Suspect]
  6. SOLIFENACIN SUCCINATE [Concomitant]
  7. DOXYCYCLINE [Concomitant]

REACTIONS (2)
  - PALPITATIONS [None]
  - ATRIAL FIBRILLATION [None]
